FAERS Safety Report 5267232-4 (Version None)
Quarter: 2007Q1

REPORT INFORMATION
  Report Type: 
  Country: None (occurrence: None)
  Receive Date: 20070316
  Receipt Date: 20070307
  Transmission Date: 20070707
  Serious: Yes (Other)
  Sender: FDA-Public Use
  Company Number: PHEH2007US02843

PATIENT
  Sex: Female
  Weight: 56.235 kg

DRUGS (1)
  1. ZOMETA [Suspect]
     Dosage: 4 EVERY FOUR WEEKS
     Dates: end: 20060907

REACTIONS (3)
  - OSTEONECROSIS [None]
  - PAIN IN JAW [None]
  - PYREXIA [None]
